FAERS Safety Report 4808027-2 (Version None)
Quarter: 2005Q4

REPORT INFORMATION
  Report Type: 
  Country: None (occurrence: None)
  Receive Date: 20051021
  Receipt Date: 20051007
  Transmission Date: 20060501
  Serious: Yes (Hospitalization)
  Sender: FDA-Public Use
  Company Number: 8012683

PATIENT
  Age: 48 Year
  Sex: Male
  Weight: 123 kg

DRUGS (19)
  1. ZAROXOLYN [Suspect]
     Indication: CARDIAC FAILURE CONGESTIVE
     Dosage: 2.5 MG 3/W
     Dates: start: 20050825
  2. NESIRITIDE-BLINDED [Suspect]
     Indication: CARDIAC FAILURE CONGESTIVE
     Dosage: 2/W IV
     Route: 042
     Dates: start: 20050815
  3. PLACEBO-BLINDED [Suspect]
     Indication: CARDIAC FAILURE CONGESTIVE
     Dosage: 2/W IV
     Route: 042
     Dates: start: 20050815
  4. LANOXIN [Concomitant]
  5. OXYCONTIN [Concomitant]
  6. DIOVAN [Concomitant]
  7. ALDACTONE [Concomitant]
  8. FLEXERIL [Concomitant]
  9. COREG [Concomitant]
  10. CORDARONE [Concomitant]
  11. HYDRALAZINE [Concomitant]
  12. ZOCOR [Concomitant]
  13. LASIX [Concomitant]
  14. ZOLOFT [Concomitant]
  15. EXTRA STRENGTH TYLENOL [Concomitant]
  16. FLOMAX [Concomitant]
  17. ASPIRIN [Concomitant]
  18. SERETIDE DISKUS MITE [Concomitant]
  19. COMBIVENT [Concomitant]

REACTIONS (8)
  - BLOOD CREATININE INCREASED [None]
  - BLOOD PRESSURE DECREASED [None]
  - BLOOD UREA INCREASED [None]
  - CARDIAC FAILURE CONGESTIVE [None]
  - DIZZINESS [None]
  - NAUSEA [None]
  - NODULE [None]
  - WEIGHT INCREASED [None]
